FAERS Safety Report 21348437 (Version 1)
Quarter: 2022Q3

REPORT INFORMATION
  Report Type: Spontaneous
  Country: US (occurrence: None)
  Receive Date: 20220916
  Receipt Date: 20220916
  Transmission Date: 20221026
  Serious: No
  Sender: FDA-Public Use
  Company Number: None

PATIENT
  Age: 76 Year
  Sex: Male
  Weight: 89.1 kg

DRUGS (1)
  1. BEBTELOVIMAB [Suspect]
     Active Substance: BEBTELOVIMAB

REACTIONS (13)
  - Impaired driving ability [None]
  - Gait disturbance [None]
  - Gait disturbance [None]
  - Fall [None]
  - Feeling abnormal [None]
  - Hallucination [None]
  - Chills [None]
  - Tremor [None]
  - Dizziness [None]
  - Fatigue [None]
  - Emotional distress [None]
  - Liver disorder [None]
  - Post-acute COVID-19 syndrome [None]

NARRATIVE: CASE EVENT DATE: 20220713
